FAERS Safety Report 5840882-X (Version None)
Quarter: 2008Q3

REPORT INFORMATION
  Report Type: 
  Country: None (occurrence: None)
  Receive Date: 20080811
  Receipt Date: 20080806
  Transmission Date: 20090109
  Serious: Yes (Death, Other)
  Sender: FDA-Public Use
  Company Number: US-BOEHRINGER INGELHEIM GMBH, GERMANY-2008-BP-08273BP

PATIENT
  Sex: Female
  Weight: 74 kg

DRUGS (14)
  1. SPIRIVA [Suspect]
     Indication: CHRONIC OBSTRUCTIVE PULMONARY DISEASE
     Route: 055
     Dates: start: 20071115, end: 20080524
  2. ADVAIR DISKUS 100/50 [Concomitant]
     Indication: CHRONIC OBSTRUCTIVE PULMONARY DISEASE
     Route: 055
     Dates: start: 20071115
  3. MULTI-VITAMIN [Concomitant]
     Route: 048
  4. FISH OIL [Concomitant]
  5. LIPITOR [Concomitant]
     Route: 048
  6. ALBUTEROL [Concomitant]
     Route: 055
  7. HYDRO/APAP [Concomitant]
     Route: 048
  8. LISINOPRIL [Concomitant]
     Route: 048
  9. METOPROLOL SUCCINATE [Concomitant]
  10. FERROUS SULFATE TAB [Concomitant]
     Route: 048
  11. CHANTIX [Concomitant]
  12. CPAP [Concomitant]
  13. LOVENOX [Concomitant]
  14. LOPRESSOR [Concomitant]

REACTIONS (7)
  - AORTIC ANEURYSM RUPTURE [None]
  - AORTIC STENOSIS [None]
  - ARRHYTHMIA [None]
  - HYPOTENSION [None]
  - MYOCARDIAL INFARCTION [None]
  - OEDEMA PERIPHERAL [None]
  - RHINITIS ALLERGIC [None]
